FAERS Safety Report 10795931 (Version 3)
Quarter: 2015Q2

REPORT INFORMATION
  Report Type: Spontaneous
  Country: US (occurrence: US)
  Receive Date: 20150216
  Receipt Date: 20150424
  Transmission Date: 20150821
  Serious: Yes (Hospitalization)
  Sender: FDA-Public Use
  Company Number: US-BEH-2015048560

PATIENT
  Age: 77 Year
  Sex: Female
  Weight: 72 kg

DRUGS (41)
  1. SYSTANE (HYPROMELLOSE 2910 (4000 MPA.S)) [Concomitant]
     Active Substance: HYPROMELLOSE 2910 (4000 MPA.S)
     Route: 047
  2. LANTUS [Concomitant]
     Active Substance: INSULIN GLARGINE
  3. EMLA [Concomitant]
     Active Substance: LIDOCAINE\PRILOCAINE
  4. OMEPRAZOLE. [Concomitant]
     Active Substance: OMEPRAZOLE
  5. ZANTAC [Concomitant]
     Active Substance: RANITIDINE HYDROCHLORIDE
  6. PREDNISONE. [Concomitant]
     Active Substance: PREDNISONE
  7. PROBIOTIC [Concomitant]
     Active Substance: PROBIOTICS NOS
  8. MICARDIS [Concomitant]
     Active Substance: TELMISARTAN
  9. XALATAN [Concomitant]
     Active Substance: LATANOPROST
  10. PREDNISOLONE. [Concomitant]
     Active Substance: PREDNISOLONE
  11. HIZENTRA [Suspect]
     Active Substance: HUMAN IMMUNOGLOBULIN G
     Dosage: 4 GM 20 ML VIAL
     Route: 058
  12. HIZENTRA [Suspect]
     Active Substance: HUMAN IMMUNOGLOBULIN G
     Indication: IMMUNODEFICIENCY COMMON VARIABLE
     Dates: start: 20101005
  13. SYMBICORT [Concomitant]
     Active Substance: BUDESONIDE\FORMOTEROL FUMARATE DIHYDRATE
  14. LEVALBUTEROL [Concomitant]
     Active Substance: LEVALBUTEROL
  15. IPRATROPIUM [Concomitant]
     Active Substance: IPRATROPIUM
  16. ADVAIR HFA [Concomitant]
     Active Substance: FLUTICASONE PROPIONATE\SALMETEROL XINAFOATE
  17. DIPHENHYDRAMINE [Concomitant]
     Active Substance: DIPHENHYDRAMINE
  18. LATANOPROST. [Concomitant]
     Active Substance: LATANOPROST
  19. XOPENEX [Concomitant]
     Active Substance: LEVALBUTEROL HYDROCHLORIDE
  20. CARDIZEM [Concomitant]
     Active Substance: DILTIAZEM HYDROCHLORIDE
  21. XANAX [Concomitant]
     Active Substance: ALPRAZOLAM
  22. ZETIA [Concomitant]
     Active Substance: EZETIMIBE
  23. XARELTO [Concomitant]
     Active Substance: RIVAROXABAN
  24. DRUG USED IN DIABETES [Concomitant]
     Active Substance: UNSPECIFIED INGREDIENT
  25. MEDROL [Concomitant]
     Active Substance: METHYLPREDNISOLONE
  26. MICARDIS [Concomitant]
     Active Substance: TELMISARTAN
  27. EPINASTINE [Concomitant]
     Active Substance: EPINASTINE
  28. HYDROCODONE BITARTRATE AND ACETAMINOPHEN [Concomitant]
     Active Substance: ACETAMINOPHEN\HYDROCODONE BITARTRATE
  29. LIDOCAINE PRILOCAINE [Concomitant]
  30. EPIPEN [Concomitant]
     Active Substance: EPINEPHRINE
  31. OXYCODONE AND ACETAMINOPHEN [Concomitant]
     Active Substance: ACETAMINOPHEN\OXYCODONE\OXYCODONE HYDROCHLORIDE
  32. DICYCLOMINE [Concomitant]
     Active Substance: DICYCLOMINE HYDROCHLORIDE
  33. KETOROLAC [Concomitant]
     Active Substance: KETOROLAC\KETOROLAC TROMETHAMINE
  34. VITAMIN D3 [Concomitant]
     Active Substance: CHOLECALCIFEROL
  35. ACETAMINOPHEN. [Concomitant]
     Active Substance: ACETAMINOPHEN
  36. AMIODARONE [Concomitant]
     Active Substance: AMIODARONE
  37. AYR [Concomitant]
     Route: 045
  38. GLIMEPIRIDE. [Concomitant]
     Active Substance: GLIMEPIRIDE
  39. MEDROL [Concomitant]
     Active Substance: METHYLPREDNISOLONE
  40. AMOXICILLIN. [Concomitant]
     Active Substance: AMOXICILLIN
  41. ALBUTEROL. [Concomitant]
     Active Substance: ALBUTEROL

REACTIONS (5)
  - Fall [Unknown]
  - Pneumonia [Unknown]
  - Chronic obstructive pulmonary disease [Unknown]
  - Muscular weakness [Unknown]
  - Cerebrovascular accident [Unknown]

NARRATIVE: CASE EVENT DATE: 20140605
